FAERS Safety Report 6557530-6 (Version None)
Quarter: 2010Q1

REPORT INFORMATION
  Report Type: 
  Country: None (occurrence: None)
  Receive Date: 20100129
  Receipt Date: 20100125
  Transmission Date: 20100710
  Serious: Yes (Hospitalization)
  Sender: FDA-Public Use
  Company Number: FR-ROCHE-681369

PATIENT
  Sex: Male

DRUGS (20)
  1. ROCEPHIN [Suspect]
     Dosage: STRENGTH: 2 GRAM/40 ML POWDER FOR SOLUTION FOR INJECTION
     Route: 042
     Dates: start: 20080629, end: 20080702
  2. IZILOX [Suspect]
     Route: 042
     Dates: start: 20080629, end: 20080702
  3. ZACLAR [Suspect]
     Route: 042
     Dates: start: 20080629, end: 20080702
  4. PERFALGAN [Suspect]
     Indication: DRUG USE FOR UNKNOWN INDICATION
     Route: 042
     Dates: start: 20080629, end: 20080717
  5. CIPROFLOXACIN HCL [Suspect]
     Indication: DRUG USE FOR UNKNOWN INDICATION
     Route: 042
     Dates: start: 20080702, end: 20080704
  6. TAVANIC [Suspect]
     Indication: DRUG USE FOR UNKNOWN INDICATION
     Route: 042
     Dates: start: 20080703
  7. LOVENOX [Suspect]
     Indication: DRUG USE FOR UNKNOWN INDICATION
     Route: 058
     Dates: start: 20080705
  8. TAZOCILLINE [Suspect]
     Indication: DRUG USE FOR UNKNOWN INDICATION
     Route: 042
     Dates: start: 20080707, end: 20080711
  9. AERIUS [Suspect]
     Indication: DRUG USE FOR UNKNOWN INDICATION
     Route: 048
     Dates: start: 20080709
  10. VENOFER [Suspect]
     Indication: DRUG USE FOR UNKNOWN INDICATION
     Route: 048
     Dates: start: 20080711
  11. TPN [Suspect]
     Indication: DRUG USE FOR UNKNOWN INDICATION
     Route: 065
  12. ZYVOXID [Suspect]
     Indication: DRUG USE FOR UNKNOWN INDICATION
     Route: 048
     Dates: start: 20080714
  13. OMEPRAZOLE [Suspect]
     Indication: DRUG USE FOR UNKNOWN INDICATION
     Route: 048
     Dates: start: 20080717
  14. TIENAM [Suspect]
     Indication: DRUG USE FOR UNKNOWN INDICATION
     Route: 048
     Dates: start: 20080718
  15. DOLIPRANE [Suspect]
     Indication: DRUG USE FOR UNKNOWN INDICATION
     Route: 048
     Dates: start: 20080718
  16. INNOHEP [Concomitant]
     Route: 042
     Dates: start: 20080629, end: 20080704
  17. SUCRALFATE [Concomitant]
     Route: 048
     Dates: start: 20080630, end: 20080716
  18. SOLU-MEDROL [Concomitant]
     Route: 048
     Dates: start: 20080720
  19. TRIFLUCAN [Concomitant]
     Route: 048
     Dates: start: 20080725
  20. ATARAX [Concomitant]
     Dates: start: 20080725

REACTIONS (1)
  - CYTOLYTIC HEPATITIS [None]
